FAERS Safety Report 4882569-6 (Version None)
Quarter: 2005Q4

REPORT INFORMATION
  Report Type: 
  Country: None (occurrence: None)
  Receive Date: 20051201
  Receipt Date: 20050930
  Transmission Date: 20060501
  Serious: No
  Sender: FDA-Public Use
  Company Number: 2005PV002743

PATIENT
  Sex: Male

DRUGS (5)
  1. BYETTA [Suspect]
     Dosage: 10 MCG; BID; SC
     Route: 058
     Dates: start: 20050718
  2. METFORMIN HCL [Concomitant]
  3. ZOCOR [Concomitant]
  4. VALSALTAN [Concomitant]
  5. .. [Concomitant]

REACTIONS (3)
  - BLOOD TRIGLYCERIDES INCREASED [None]
  - EARLY MORNING AWAKENING [None]
  - SLEEP DISORDER [None]
